FAERS Safety Report 4778074-8 (Version None)
Quarter: 2005Q3

REPORT INFORMATION
  Report Type: 
  Country: None (occurrence: None)
  Receive Date: 20050926
  Receipt Date: 20050729
  Transmission Date: 20060218
  Serious: Yes (Death, Other)
  Sender: FDA-Public Use
  Company Number: 200511679DE

PATIENT
  Age: 83 Year
  Sex: Male

DRUGS (4)
  1. RILUTEK [Suspect]
     Indication: AMYOTROPHIC LATERAL SCLEROSIS
     Route: 048
     Dates: start: 19960101, end: 20050101
  2. VITAMIN E [Concomitant]
     Indication: AMYOTROPHIC LATERAL SCLEROSIS
     Route: 048
  3. FALITHROM [Concomitant]
     Indication: ATRIAL FIBRILLATION
     Route: 048
  4. ISOPTIN [Concomitant]
     Indication: ATRIAL FIBRILLATION
     Route: 048

REACTIONS (6)
  - DIARRHOEA [None]
  - HYPOKALAEMIA [None]
  - ILEUS PARALYTIC [None]
  - INTESTINAL FUNCTIONAL DISORDER [None]
  - INTESTINAL ISCHAEMIA [None]
  - PNEUMONIA [None]
